FAERS Safety Report 9505929 (Version 1)
Quarter: 2013Q1

REPORT INFORMATION
  Report Type: Spontaneous
  Country: US (occurrence: None)
  Receive Date: 20130208
  Receipt Date: 20130208
  Transmission Date: 20140127
  Serious: No
  Sender: FDA-Public Use
  Company Number: 2135225-2013-00011

PATIENT
  Sex: 0

DRUGS (1)
  1. ASCLERA [Suspect]
     Indication: SCLEROTHERAPY
     Route: 042

REACTIONS (3)
  - Pain [None]
  - Burning sensation [None]
  - Erythema [None]
